FAERS Safety Report 9314599 (Version 1)
Quarter: 2013Q2

REPORT INFORMATION
  Report Type: Spontaneous
  Country: US (occurrence: US)
  Receive Date: 20130529
  Receipt Date: 20130529
  Transmission Date: 20140414
  Serious: No
  Sender: FDA-Public Use
  Company Number: US-PFIZER INC-2013163738

PATIENT
  Age: 50 Year
  Sex: Male
  Weight: 119.27 kg

DRUGS (3)
  1. LYRICA [Suspect]
     Indication: PAIN
     Dosage: 300 MG, 3X/DAY
     Route: 048
  2. METFORMIN [Concomitant]
     Indication: DIABETES MELLITUS
     Dosage: UNK
  3. GLIPIZIDE [Concomitant]
     Indication: DIABETES MELLITUS
     Dosage: UNK

REACTIONS (1)
  - Pain [Unknown]
